FAERS Safety Report 18329850 (Version 3)
Quarter: 2020Q4

REPORT INFORMATION
  Report Type: Spontaneous
  Country: US (occurrence: US)
  Receive Date: 20200930
  Receipt Date: 20201230
  Transmission Date: 20210113
  Serious: No
  Sender: FDA-Public Use
  Company Number: US-INDIVIOR US-INDV-125634-2020

PATIENT
  Age: 37 Year
  Sex: Male

DRUGS (2)
  1. SUBOXONE [Suspect]
     Active Substance: BUPRENORPHINE HYDROCHLORIDE\NALOXONE HYDROCHLORIDE
     Indication: DRUG USE DISORDER
     Dosage: UNK
     Route: 065
     Dates: end: 2020
  2. SUBLOCADE [Suspect]
     Active Substance: BUPRENORPHINE
     Indication: DRUG USE DISORDER
     Dosage: 300 MILLIGRAM, QMO (TWO INJECTIONS)
     Route: 065
     Dates: start: 20200604

REACTIONS (4)
  - Physical assault [Recovered/Resolved]
  - Intentional removal of drug delivery system by patient [Recovered/Resolved]
  - Drug diversion [Recovered/Resolved]
  - Injection site erosion [Recovering/Resolving]

NARRATIVE: CASE EVENT DATE: 20200702
